FAERS Safety Report 9707477 (Version 2)
Quarter: 2013Q4

REPORT INFORMATION
  Report Type: Report from Study
  Country: BR (occurrence: BR)
  Receive Date: 20131125
  Receipt Date: 20131226
  Transmission Date: 20140711
  Serious: Yes (Life-Threatening, Hospitalization, Other)
  Sender: FDA-Public Use
  Company Number: PHHY2013BR133755

PATIENT
  Age: 34 Year
  Sex: Female
  Weight: 72 kg

DRUGS (3)
  1. TOFRANIL PAMOATO [Suspect]
     Indication: DEPRESSION
     Dosage: 1 DF, DAILY (150 MG)
     Route: 048
  2. TOFRANIL PAMOATO [Suspect]
     Dosage: 2 DF, DAILY (75 MG, IN MORNING)
     Route: 048
  3. DIOVAN HCT [Concomitant]
     Indication: HYPERTENSION
     Dosage: 1 DF, UNK
     Route: 048

REACTIONS (16)
  - Apparent death [Recovered/Resolved]
  - Amnesia [Recovered/Resolved]
  - Insomnia [Recovered/Resolved]
  - Delirium [Recovered/Resolved]
  - Psychomotor hyperactivity [Recovered/Resolved]
  - Depression [Recovered/Resolved]
  - Locked-in syndrome [Not Recovered/Not Resolved]
  - Pain [Recovered/Resolved]
  - Crying [Recovered/Resolved]
  - Swelling face [Recovered/Resolved]
  - Hunger [Not Recovered/Not Resolved]
  - Malaise [Not Recovered/Not Resolved]
  - Weight increased [Not Recovered/Not Resolved]
  - Headache [Recovered/Resolved]
  - Fatigue [Not Recovered/Not Resolved]
  - Emotional distress [Recovered/Resolved]
